FAERS Safety Report 14907689 (Version 1)
Quarter: 2018Q2

REPORT INFORMATION
  Report Type: Spontaneous
  Country: US (occurrence: US)
  Receive Date: 20180517
  Receipt Date: 20180517
  Transmission Date: 20180711
  Serious: No
  Sender: FDA-Public Use
  Company Number: US-VANDA PHARMACEUTICALS, INC-2017ILOUS001660

PATIENT
  Age: 49 Year
  Sex: Female

DRUGS (2)
  1. FANAPT [Suspect]
     Active Substance: ILOPERIDONE
     Indication: BIPOLAR DISORDER
     Dosage: 2 MG, BID
     Route: 048
     Dates: start: 20171106, end: 20171216
  2. FANAPT [Suspect]
     Active Substance: ILOPERIDONE
     Dosage: 2 MG, QD
     Route: 048

REACTIONS (1)
  - Somnambulism [Recovered/Resolved]

NARRATIVE: CASE EVENT DATE: 20171119
